FAERS Safety Report 16532544 (Version 2)
Quarter: 2019Q3

REPORT INFORMATION
  Report Type: Spontaneous
  Country: GB (occurrence: GB)
  Receive Date: 20190705
  Receipt Date: 20190719
  Transmission Date: 20191004
  Serious: Yes (Other)
  Sender: FDA-Public Use
  Company Number: PHHY2019GB151567

PATIENT

DRUGS (3)
  1. IMIQUIMOD. [Suspect]
     Active Substance: IMIQUIMOD
     Indication: VULVAR DYSPLASIA
     Dosage: UNK, QW
     Route: 061
  2. AZATHIOPRINE. [Suspect]
     Active Substance: AZATHIOPRINE
     Indication: POLYMYOSITIS
     Route: 065
  3. PREDNISOLONE. [Suspect]
     Active Substance: PREDNISOLONE
     Indication: BRONCHIECTASIS
     Route: 048

REACTIONS (3)
  - Vulvar dysplasia [Unknown]
  - Product use in unapproved indication [Unknown]
  - Off label use [Unknown]
